FAERS Safety Report 17281149 (Version 1)
Quarter: 2020Q1

REPORT INFORMATION
  Report Type: Spontaneous
  Country: US (occurrence: US)
  Receive Date: 20200117
  Receipt Date: 20200117
  Transmission Date: 20200409
  Serious: No
  Sender: FDA-Public Use
  Company Number: US-AUROBINDO-AUR-APL-2018-058673

PATIENT

DRUGS (1)
  1. DEXAMFETAMINE+AMFETAMINE 10MG [Suspect]
     Active Substance: AMPHETAMINE\DEXTROAMPHETAMINE
     Indication: PRODUCT USED FOR UNKNOWN INDICATION
     Dosage: 10 MILLIGRAM
     Route: 065

REACTIONS (8)
  - Therapeutic product effect incomplete [Unknown]
  - Product substitution issue [Unknown]
  - Anxiety [Unknown]
  - Tension [Unknown]
  - Irritability [Unknown]
  - Headache [Unknown]
  - Feeling jittery [Unknown]
  - Fall [Unknown]
